FAERS Safety Report 9381454 (Version 1)
Quarter: 2013Q3

REPORT INFORMATION
  Report Type: Report from Study
  Country: AR (occurrence: AR)
  Receive Date: 20130703
  Receipt Date: 20130703
  Transmission Date: 20140515
  Serious: Yes (Other)
  Sender: FDA-Public Use
  Company Number: PHHY2013AR068538

PATIENT
  Sex: Male

DRUGS (1)
  1. EXELON PATCH [Suspect]
     Indication: AMNESIA
     Dosage: 4.6 MG, (PATCH 5 CM2) DAILY
     Route: 062
     Dates: start: 20130527

REACTIONS (2)
  - Brain neoplasm [Unknown]
  - Confusional state [Unknown]
